FAERS Safety Report 12858310 (Version 2)
Quarter: 2017Q3

REPORT INFORMATION
  Report Type: Spontaneous
  Country: BE (occurrence: BE)
  Receive Date: 20161018
  Receipt Date: 20170824
  Transmission Date: 20171127
  Serious: Yes (Disabling, Other)
  Sender: FDA-Public Use
  Company Number: BE-JNJFOC-20160929990

PATIENT
  Age: 52 Year
  Sex: Male
  Weight: 65 kg

DRUGS (1)
  1. SIMPONI [Suspect]
     Active Substance: GOLIMUMAB
     Indication: ANKYLOSING SPONDYLITIS
     Route: 058
     Dates: start: 20160212, end: 20160612

REACTIONS (4)
  - Rheumatic disorder [Unknown]
  - Osteonecrosis [Unknown]
  - Colitis ulcerative [Unknown]
  - Osteitis [Unknown]

NARRATIVE: CASE EVENT DATE: 2016
